FAERS Safety Report 9475000 (Version 2)
Quarter: 2013Q3

REPORT INFORMATION
  Report Type: Report from Study
  Country: US (occurrence: US)
  Receive Date: 20130824
  Receipt Date: 20130924
  Transmission Date: 20140515
  Serious: Yes (Hospitalization)
  Sender: FDA-Public Use
  Company Number: US-ROCHE-1265032

PATIENT
  Age: 62 Year
  Sex: Male
  Weight: 72.91 kg

DRUGS (4)
  1. XELODA [Suspect]
     Indication: COLORECTAL CANCER
     Dosage: CONCURRENT WITH RADIATION TREATMENT ON MONDAY-FRID
     Route: 048
     Dates: start: 20130808
  2. OXALIPLATIN [Concomitant]
     Indication: RECTAL CANCER
     Route: 042
     Dates: start: 20130801, end: 20130822
  3. LEUCOVORIN [Concomitant]
     Indication: RECTAL CANCER
     Route: 042
     Dates: start: 20130801, end: 20130822
  4. 5-FU [Concomitant]
     Indication: RECTAL CANCER
     Route: 042
     Dates: start: 20130801, end: 20130822

REACTIONS (2)
  - Arteriospasm coronary [Unknown]
  - Arteriospasm coronary [Recovered/Resolved]
